FAERS Safety Report 8206953-8 (Version None)
Quarter: 2012Q1

REPORT INFORMATION
  Report Type: 
  Country: None (occurrence: None)
  Receive Date: 20120314
  Receipt Date: 20120309
  Transmission Date: 20120608
  Serious: Yes (Other)
  Sender: FDA-Public Use
  Company Number: TW-JNJFOC-20120305363

PATIENT
  Age: 55 Year
  Sex: Female

DRUGS (2)
  1. NICORETTE [Suspect]
     Indication: PRODUCT USED FOR UNKNOWN INDICATION
     Dosage: FOR ABOUT 10-20 YEARS
     Route: 048
  2. TRANQUILLIZER [Concomitant]
     Indication: SLEEP DISORDER
     Dosage: OCCASIONALLY, PRESCRIBED BY THE DOCTOR
     Route: 065

REACTIONS (3)
  - INTENTIONAL DRUG MISUSE [None]
  - WRONG TECHNIQUE IN DRUG USAGE PROCESS [None]
  - DRUG DEPENDENCE [None]
